FAERS Safety Report 12143023 (Version 2)
Quarter: 2016Q2

REPORT INFORMATION
  Report Type: Report from Study
  Country: US (occurrence: US)
  Receive Date: 20160303
  Receipt Date: 20160404
  Transmission Date: 20160815
  Serious: No
  Sender: FDA-Public Use
  Company Number: US-GILEAD-2016-0201485

PATIENT
  Age: 6 Year
  Sex: Male
  Weight: 20.1 kg

DRUGS (17)
  1. AZTREONAM LYSINE [Suspect]
     Active Substance: AZTREONAM LYSINE
     Indication: CYSTIC FIBROSIS LUNG
     Dosage: 75 MG, UNK
     Route: 055
     Dates: start: 20150720
  2. NACL [Concomitant]
     Active Substance: SODIUM CHLORIDE
  3. SINGULAIR [Concomitant]
     Active Substance: MONTELUKAST SODIUM
  4. PROAIR HFA [Concomitant]
     Active Substance: ALBUTEROL SULFATE
  5. CLARITIN [Concomitant]
     Active Substance: LORATADINE
  6. ACCUNEB [Concomitant]
     Active Substance: ALBUTEROL SULFATE
  7. QVAR [Concomitant]
     Active Substance: BECLOMETHASONE DIPROPIONATE
  8. AZTREONAM LYSINE [Suspect]
     Active Substance: AZTREONAM LYSINE
     Indication: PSEUDOMONAS INFECTION
  9. URSODIOL. [Concomitant]
     Active Substance: URSODIOL
  10. ZENPEP [Concomitant]
     Active Substance: PANCRELIPASE AMYLASE\PANCRELIPASE LIPASE\PANCRELIPASE PROTEASE
  11. LACTOBACILLUS RHAMNOSUS [Concomitant]
     Active Substance: LACTOBACILLUS RHAMNOSUS
  12. MIRALAX [Concomitant]
     Active Substance: POLYETHYLENE GLYCOL 3350
  13. AQUADEKS                           /07679501/ [Concomitant]
  14. PULMOZYME [Concomitant]
     Active Substance: DORNASE ALFA
  15. LEVAQUIN [Concomitant]
     Active Substance: LEVOFLOXACIN
  16. TOBI [Concomitant]
     Active Substance: TOBRAMYCIN
  17. CHOLECALCIFEROL [Concomitant]
     Active Substance: CHOLECALCIFEROL

REACTIONS (6)
  - Erythema [Recovered/Resolved]
  - Conjunctivitis [Unknown]
  - Swelling face [Recovered/Resolved]
  - Off label use [Not Recovered/Not Resolved]
  - Sinusitis [Unknown]
  - Nasal polyps [Unknown]

NARRATIVE: CASE EVENT DATE: 20150720
